FAERS Safety Report 9934090 (Version 1)
Quarter: 2014Q1

REPORT INFORMATION
  Report Type: Spontaneous
  Country: US (occurrence: US)
  Receive Date: 20140228
  Receipt Date: 20140228
  Transmission Date: 20141002
  Serious: No
  Sender: FDA-Public Use
  Company Number: US-009507513-1402USA013042

PATIENT
  Sex: Female

DRUGS (1)
  1. NUVARING [Suspect]
     Dosage: 3 WEEKD IN, 1 WEEK OUT, 1 RING
     Route: 067

REACTIONS (2)
  - Nausea [Unknown]
  - Inappropriate schedule of drug administration [Unknown]
